FAERS Safety Report 10302345 (Version 4)
Quarter: 2014Q3

REPORT INFORMATION
  Report Type: Report from Study
  Country: TR (occurrence: TR)
  Receive Date: 20140714
  Receipt Date: 20140915
  Transmission Date: 20150326
  Serious: Yes (Hospitalization, Other)
  Sender: FDA-Public Use
  Company Number: PHHY2014TR085905

PATIENT
  Age: 48 Year
  Sex: Female
  Weight: 60 kg

DRUGS (6)
  1. GILENYA [Suspect]
     Active Substance: FINGOLIMOD HYDROCHLORIDE
     Indication: MULTIPLE SCLEROSIS
     Dosage: 0.5 MG, DAILY
     Route: 048
     Dates: start: 20140331, end: 20140704
  2. FLANTADIN [Concomitant]
     Active Substance: DEFLAZACORT
     Dosage: 30 MG, QD
  3. KEPPRA [Concomitant]
     Active Substance: LEVETIRACETAM
     Dosage: 2 DF (500MG)
  4. FLANTADIN [Concomitant]
     Active Substance: DEFLAZACORT
     Dosage: 6 MG, QD
  5. PROZAC [Concomitant]
     Active Substance: FLUOXETINE HYDROCHLORIDE
     Dosage: 20 MG, QD
  6. PIYELOSEPTYL [Concomitant]
     Dosage: 4X1

REACTIONS (24)
  - Acute coronary syndrome [Recovered/Resolved]
  - Dyspnoea [Unknown]
  - Troponin I increased [Unknown]
  - Blood creatine phosphokinase increased [Unknown]
  - International normalised ratio increased [Unknown]
  - Blood albumin decreased [Unknown]
  - Alanine aminotransferase increased [Unknown]
  - Pyrexia [Unknown]
  - Blood glucose increased [Unknown]
  - White blood cell count increased [Unknown]
  - Asthenia [Unknown]
  - Protein total decreased [Unknown]
  - Blood pressure decreased [Unknown]
  - Hepatitis B surface antibody positive [Unknown]
  - Blood urea increased [Unknown]
  - Blood creatinine increased [Unknown]
  - Aspartate aminotransferase increased [Unknown]
  - Urinary tract infection [Unknown]
  - Gamma-glutamyltransferase increased [Unknown]
  - Blood creatine phosphokinase MB increased [Unknown]
  - Supraventricular tachycardia [Recovered/Resolved]
  - Lymphocyte count decreased [Unknown]
  - Myocardial infarction [Unknown]
  - General physical health deterioration [Recovered/Resolved]

NARRATIVE: CASE EVENT DATE: 20140331
